FAERS Safety Report 9559233 (Version 1)
Quarter: 2013Q3

REPORT INFORMATION
  Report Type: Spontaneous
  Country: FR (occurrence: FR)
  Receive Date: 20130927
  Receipt Date: 20130927
  Transmission Date: 20140515
  Serious: Yes (Death)
  Sender: FDA-Public Use
  Company Number: FR-009507513-1309FRA008057

PATIENT
  Age: 85 Year
  Sex: Female

DRUGS (12)
  1. JANUVIA [Suspect]
     Dosage: 100 MG, QD
     Route: 048
  2. PARACETAMOL PANPHARMA [Suspect]
     Dosage: 1 G, TID
     Route: 042
     Dates: start: 20130825, end: 20130826
  3. NEFOPAM MYLAN [Suspect]
     Dosage: 1 DF, TID
     Route: 042
     Dates: start: 20130825, end: 20130826
  4. DANATROL [Suspect]
     Dosage: 200 MG, QD
     Route: 048
  5. PLAVIX [Suspect]
     Dosage: 75 MG, QD
     Route: 048
  6. PRAVASTATIN SODIUM [Suspect]
     Dosage: 1 DF, QD
     Route: 048
  7. COUMADIN [Suspect]
     Dosage: 1 MG, QD
     Route: 048
  8. FUROSEMIDE [Suspect]
     Dosage: 120 MG, QD
     Route: 048
  9. AMIODARONE [Suspect]
     Dosage: 100 MG, QD
     Route: 048
  10. GLICLAZIDE ARROW [Suspect]
     Dosage: 30 MG, QD
     Route: 048
  11. METFORMIN ARROW [Suspect]
     Dosage: 500 MG, QD
     Route: 048
  12. CACIT VITAMINE D3 [Suspect]
     Dosage: 1 DF, QD
     Route: 048

REACTIONS (1)
  - Hepatitis fulminant [Fatal]
